FAERS Safety Report 6600436-4 (Version None)
Quarter: 2010Q1

REPORT INFORMATION
  Report Type: 
  Country: None (occurrence: None)
  Receive Date: 20100223
  Receipt Date: 20100223
  Transmission Date: 20100710
  Serious: Yes (Death)
  Sender: FDA-Public Use
  Company Number: None

PATIENT
  Sex: Female

DRUGS (2)
  1. ALIMTA [Suspect]
     Indication: BRONCHIAL CARCINOMA
     Dosage: 750MG EVERY 3 WEEKS IV
     Route: 042
     Dates: start: 20090904, end: 20100218
  2. ALIMTA [Suspect]
     Indication: LUNG NEOPLASM MALIGNANT
     Dosage: 750MG EVERY 3 WEEKS IV
     Route: 042
     Dates: start: 20090904, end: 20100218

REACTIONS (1)
  - DEATH [None]
